FAERS Safety Report 4576912-5 (Version None)
Quarter: 2005Q1

REPORT INFORMATION
  Report Type: 
  Country: None (occurrence: None)
  Receive Date: 20050208
  Receipt Date: 20050127
  Transmission Date: 20050727
  Serious: Yes (Other)
  Sender: FDA-Public Use
  Company Number: 2005020783

PATIENT
  Age: 41 Year
  Sex: Female
  Weight: 46.7205 kg

DRUGS (1)
  1. BENADRYL ALLERGY SINUS HEADACHE (DIPHENYDRAMINE, PARACETAMOL, PSEUDOEP [Suspect]
     Indication: SINUS DISORDER
     Dosage: 1 CAPLET QD PRN, ORAL
     Route: 048
     Dates: start: 20040701

REACTIONS (1)
  - HAEMORRHAGE [None]
